FAERS Safety Report 6653547-1 (Version None)
Quarter: 2010Q1

REPORT INFORMATION
  Report Type: 
  Country: None (occurrence: None)
  Receive Date: 20100326
  Receipt Date: 20100315
  Transmission Date: 20100710
  Serious: Yes (Other)
  Sender: FDA-Public Use
  Company Number: LU-AMGEN-US400578

PATIENT

DRUGS (1)
  1. ENBREL [Suspect]
     Indication: PSORIATIC ARTHROPATHY
     Dosage: NOT PROVIDED
     Dates: end: 20100101

REACTIONS (1)
  - RETROPERITONEAL FIBROSIS [None]
